FAERS Safety Report 6639863-8 (Version None)
Quarter: 2010Q1

REPORT INFORMATION
  Report Type: 
  Country: None (occurrence: None)
  Receive Date: 20100315
  Receipt Date: 20100301
  Transmission Date: 20100710
  Serious: Yes (Other)
  Sender: FDA-Public Use
  Company Number: 2010AL001359

PATIENT
  Age: 90 Year
  Sex: Female

DRUGS (1)
  1. RAMIPRIL [Suspect]
     Indication: CARDIAC FAILURE
     Dosage: QD

REACTIONS (2)
  - FLUID RETENTION [None]
  - PULMONARY EMBOLISM [None]
